FAERS Safety Report 10311930 (Version 2)
Quarter: 2014Q3

REPORT INFORMATION
  Report Type: Spontaneous
  Country: US (occurrence: US)
  Receive Date: 20140717
  Receipt Date: 20140717
  Transmission Date: 20150326
  Serious: Yes (Hospitalization, Other)
  Sender: FDA-Public Use
  Company Number: US-009507513-2010SP046934

PATIENT
  Sex: Female
  Weight: 63.5 kg

DRUGS (9)
  1. MOTRIN [Suspect]
     Active Substance: IBUPROFEN
     Indication: HEADACHE
     Dosage: 500 MG, PRN
     Dates: start: 1990, end: 20081005
  2. PERCOCET [Suspect]
     Active Substance: ACETAMINOPHEN\OXYCODONE HYDROCHLORIDE
     Indication: PAIN MANAGEMENT
     Dates: start: 200809, end: 200810
  3. NIFEREX [Suspect]
     Active Substance: IRON\POLYSACCHARIDES
     Indication: IRON DEFICIENCY ANAEMIA
     Dates: start: 200809
  4. NUVARING [Suspect]
     Active Substance: ETHINYL ESTRADIOL\ETONOGESTREL
     Indication: HAEMOSTASIS
  5. MOTRIN [Suspect]
     Active Substance: IBUPROFEN
     Indication: PAIN MANAGEMENT
  6. TYLENOL [Concomitant]
     Active Substance: ACETAMINOPHEN
     Indication: HEADACHE
     Dosage: 500 MG, PRN
     Dates: start: 1990
  7. COREG [Concomitant]
     Active Substance: CARVEDILOL
     Indication: LONG QT SYNDROME
     Dosage: 6.25 MG, BID
     Dates: start: 200502
  8. NUVARING [Suspect]
     Active Substance: ETHINYL ESTRADIOL\ETONOGESTREL
     Indication: MENSTRUAL CYCLE MANAGEMENT
     Dosage: UNK
     Route: 067
     Dates: start: 200608, end: 200810
  9. NUVARING [Suspect]
     Active Substance: ETHINYL ESTRADIOL\ETONOGESTREL
     Indication: MUSCLE SPASMS

REACTIONS (11)
  - Gastritis [Unknown]
  - Constipation [Unknown]
  - Pulmonary embolism [Unknown]
  - Drug hypersensitivity [Not Recovered/Not Resolved]
  - Off label use [Unknown]
  - Meningioma [Unknown]
  - Vomiting [Recovering/Resolving]
  - Iron deficiency anaemia [Unknown]
  - Pulmonary infarction [Unknown]
  - Urinary tract infection [Unknown]
  - Tachycardia [Unknown]

NARRATIVE: CASE EVENT DATE: 2008
